FAERS Safety Report 4848254-1 (Version None)
Quarter: 2005Q4

REPORT INFORMATION
  Report Type: 
  Country: None (occurrence: None)
  Receive Date: 20051208
  Receipt Date: 20051004
  Transmission Date: 20060501
  Serious: Yes (Other)
  Sender: FDA-Public Use
  Company Number: 2005AC01589

PATIENT
  Age: 32 Year
  Sex: Female
  Weight: 60 kg

DRUGS (20)
  1. LIDOCAINE [Suspect]
     Indication: ANAESTHESIA
  2. DAPSONE [Suspect]
     Indication: ANTIBIOTIC PROPHYLAXIS
     Dosage: TAKEN FOR TWO YEARS.
  3. METOCLOPRAMIDE [Suspect]
  4. CYCLOSPORINE [Concomitant]
  5. PREDNISONE [Concomitant]
  6. ASPIRIN [Concomitant]
  7. ONDANSETRON [Concomitant]
  8. PAROXETINE HCL [Concomitant]
  9. AMITRIPTYLINE HCL [Concomitant]
  10. NORTRIPTYLINE HCL [Concomitant]
  11. GABAPENTIN [Concomitant]
  12. SIROLIMUS [Concomitant]
  13. CLOTRIMAZOLE [Concomitant]
  14. LANSOPRAZOLE [Concomitant]
  15. ALENDRONATE SODIUM [Concomitant]
  16. CLINDAMYCIN HCL [Concomitant]
     Route: 042
  17. MIDAZOLAM [Concomitant]
  18. FENTANYL [Concomitant]
     Indication: ANAESTHESIA
  19. PROPOFOL [Concomitant]
     Indication: ANAESTHESIA
  20. NIMBEX [Concomitant]
     Indication: ANAESTHESIA
     Route: 042

REACTIONS (3)
  - BASE EXCESS POSITIVE [None]
  - METHAEMOGLOBINAEMIA [None]
  - OXYGEN SATURATION DECREASED [None]
